FAERS Safety Report 9720475 (Version 1)
Quarter: 2013Q4

REPORT INFORMATION
  Report Type: Spontaneous
  Country: IN (occurrence: IN)
  Receive Date: 20131129
  Receipt Date: 20131129
  Transmission Date: 20140711
  Serious: Yes (Other)
  Sender: FDA-Public Use
  Company Number: IN-ROCHE-1309952

PATIENT
  Sex: Female

DRUGS (2)
  1. HERCLON [Suspect]
     Indication: BREAST CANCER
     Dosage: 6 CYCLES
     Route: 065
  2. LAPATINIB [Concomitant]

REACTIONS (1)
  - Metastases to central nervous system [Unknown]
